FAERS Safety Report 18144857 (Version 1)
Quarter: 2020Q3

REPORT INFORMATION
  Report Type: Spontaneous
  Country: US (occurrence: US)
  Receive Date: 20200812
  Receipt Date: 20200812
  Transmission Date: 20201103
  Serious: Yes (Death)
  Sender: FDA-Public Use
  Company Number: None

PATIENT
  Age: 15 Year
  Sex: Female
  Weight: 43.7 kg

DRUGS (2)
  1. REMDESIVIR 100MG [Suspect]
     Active Substance: REMDESIVIR
     Route: 042
     Dates: start: 20200712, end: 20200715
  2. REMDESIVIR 100MG [Suspect]
     Active Substance: REMDESIVIR
     Indication: COVID-19
     Route: 042
     Dates: start: 20200711, end: 20200711

REACTIONS (10)
  - Disease progression [None]
  - Renal failure [None]
  - Urine output decreased [None]
  - Acute respiratory distress syndrome [None]
  - Renal impairment [None]
  - General physical health deterioration [None]
  - Therapy non-responder [None]
  - Respiratory failure [None]
  - Protein urine present [None]
  - Acute kidney injury [None]

NARRATIVE: CASE EVENT DATE: 20200712
